FAERS Safety Report 21601697 (Version 1)
Quarter: 2022Q4

REPORT INFORMATION
  Report Type: Spontaneous
  Country: US (occurrence: None)
  Receive Date: 20221115
  Receipt Date: 20221115
  Transmission Date: 20230113
  Serious: Yes (Death)
  Sender: FDA-Public Use
  Company Number: None

PATIENT
  Sex: Male

DRUGS (6)
  1. TOLVAPTAN [Suspect]
     Active Substance: TOLVAPTAN
     Indication: Hypoosmolar state
     Dosage: FREQUENCY : DAILY;?
     Route: 048
     Dates: start: 20220930, end: 20221110
  2. TOLVAPTAN [Suspect]
     Active Substance: TOLVAPTAN
     Indication: Hyponatraemia
     Dosage: FREQUENCY : DAILY;?
     Route: 048
  3. ALBUTEROL AER HFA [Concomitant]
  4. CLOTRIM/NETA CRE DIPROP [Concomitant]
  5. LEVOTHRYROXIN [Concomitant]
  6. LOSARTAN POT [Concomitant]

REACTIONS (1)
  - Death [None]
